FAERS Safety Report 15955829 (Version 1)
Quarter: 2019Q1

REPORT INFORMATION
  Report Type: Spontaneous
  Country: US (occurrence: US)
  Receive Date: 20190212
  Receipt Date: 20190212
  Transmission Date: 20190417
  Serious: No
  Sender: FDA-Public Use
  Company Number: None

PATIENT
  Age: 74 Year
  Sex: Female
  Weight: 80.55 kg

DRUGS (16)
  1. PLAQUENIL [Concomitant]
     Active Substance: HYDROXYCHLOROQUINE SULFATE
  2. TRAMADOL HYDROCHLORIDE TABLETS [Suspect]
     Active Substance: TRAMADOL HYDROCHLORIDE
     Indication: PAIN
     Dosage: ?          QUANTITY:40 TABLET(S);?
     Route: 048
     Dates: start: 20181121, end: 20181122
  3. RECLAST [Concomitant]
     Active Substance: ZOLEDRONIC ACID
  4. BIOTIN [Concomitant]
     Active Substance: BIOTIN
  5. GABAPENTIN. [Concomitant]
     Active Substance: GABAPENTIN
  6. VITAMIN B12 [Concomitant]
     Active Substance: CYANOCOBALAMIN
  7. ACIDOPHILUS [Concomitant]
     Active Substance: LACTOBACILLUS ACIDOPHILUS
  8. MULTIVITS [Concomitant]
  9. COD LIVER OIL [Concomitant]
     Active Substance: COD LIVER OIL
  10. FOLIC ACID. [Concomitant]
     Active Substance: FOLIC ACID
  11. SYNTHROID [Concomitant]
     Active Substance: LEVOTHYROXINE SODIUM
  12. OMEPRAZOLE. [Concomitant]
     Active Substance: OMEPRAZOLE
  13. POTASSIUM GLUCONATE [Concomitant]
     Active Substance: POTASSIUM GLUCONATE
  14. VITAMIN D3 [Concomitant]
     Active Substance: CHOLECALCIFEROL
  15. METHOTREXATE. [Concomitant]
     Active Substance: METHOTREXATE
  16. CALCIUM [Concomitant]
     Active Substance: CALCIUM

REACTIONS (2)
  - Heart rate irregular [None]
  - Palpitations [None]

NARRATIVE: CASE EVENT DATE: 20181121
